FAERS Safety Report 16861130 (Version 2)
Quarter: 2019Q4

REPORT INFORMATION
  Report Type: Spontaneous
  Country: IE (occurrence: IE)
  Receive Date: 20190927
  Receipt Date: 20191031
  Transmission Date: 20200122
  Serious: Yes (Hospitalization)
  Sender: FDA-Public Use
  Company Number: IE-009507513-1909IRL009438

PATIENT
  Age: 39 Year
  Sex: Female

DRUGS (6)
  1. PUREGON (FOLLITROPIN BETA) [Suspect]
     Active Substance: FOLLITROPIN
     Dosage: 300 INTERNATIONAL UNIT, Q24H
     Route: 058
  2. TETRACYCLINE [Concomitant]
     Active Substance: TETRACYCLINE
     Dosage: 250 MILLIGRAM, Q6H
     Route: 048
     Dates: start: 20190805
  3. GONASI HP [Suspect]
     Active Substance: GONADOTROPHIN, CHORIONIC
     Dosage: 10000 INTERNATIONAL UNIT
     Route: 058
  4. CYCLOGEST [Concomitant]
     Active Substance: PROGESTERONE
     Dosage: 400 MILLIGRAM, Q12H
     Route: 067
     Dates: start: 20190805, end: 20190916
  5. MEDRONE [Concomitant]
     Active Substance: METHYLPREDNISOLONE
     Route: 048
     Dates: start: 20190805
  6. SUPREFACT [Suspect]
     Active Substance: BUSERELIN
     Route: 058

REACTIONS (4)
  - Ovarian hyperstimulation syndrome [Recovered/Resolved]
  - Discomfort [Recovered/Resolved]
  - Ascites [Recovered/Resolved]
  - Abdominal distension [Recovered/Resolved]

NARRATIVE: CASE EVENT DATE: 20190805
